FAERS Safety Report 11266899 (Version 1)
Quarter: 2015Q3

REPORT INFORMATION
  Report Type: Spontaneous
  Country: US (occurrence: US)
  Receive Date: 20150713
  Receipt Date: 20150713
  Transmission Date: 20151125
  Serious: No
  Sender: FDA-Public Use
  Company Number: US-MILLENNIUM PHARMACEUTICALS, INC.-2013-04388

PATIENT
  Age: 54 Year
  Sex: Male
  Weight: 66.21 kg

DRUGS (2)
  1. VELCADE [Suspect]
     Active Substance: BORTEZOMIB
     Indication: PLASMA CELL MYELOMA
     Dosage: UNK UNK, CYCLIC
     Route: 058
     Dates: start: 20130422
  2. VELCADE [Suspect]
     Active Substance: BORTEZOMIB
     Dosage: 2.48 MG, UNK
     Route: 058
     Dates: start: 20130520, end: 20130520

REACTIONS (3)
  - Weight decreased [Unknown]
  - Haemoglobin decreased [Unknown]
  - Fatigue [Unknown]

NARRATIVE: CASE EVENT DATE: 201305
